FAERS Safety Report 17505282 (Version 3)
Quarter: 2020Q2

REPORT INFORMATION
  Report Type: Spontaneous
  Country: GB (occurrence: GB)
  Receive Date: 20200305
  Receipt Date: 20200413
  Transmission Date: 20200713
  Serious: Yes (Hospitalization, Other)
  Sender: FDA-Public Use
  Company Number: GB-MYLANLABS-2020M1024419

PATIENT
  Sex: Male

DRUGS (1)
  1. CLOZARIL [Suspect]
     Active Substance: CLOZAPINE
     Indication: SCHIZOPHRENIA
     Dosage: UNK
     Route: 048
     Dates: start: 20090911

REACTIONS (4)
  - Leukocytosis [Unknown]
  - Schizophrenia [Unknown]
  - Hospitalisation [Unknown]
  - Neutrophilia [Unknown]

NARRATIVE: CASE EVENT DATE: 2020
